FAERS Safety Report 24163555 (Version 5)
Quarter: 2024Q4

REPORT INFORMATION
  Report Type: Report from Study
  Country: TR (occurrence: TR)
  Receive Date: 20240801
  Receipt Date: 20241104
  Transmission Date: 20250115
  Serious: Yes (Hospitalization, Other)
  Sender: PFIZER
  Company Number: TR-PFIZER INC-PV202400099729

PATIENT
  Age: 60 Year
  Sex: Male
  Weight: 90 kg

DRUGS (1)
  1. ELRANATAMAB [Suspect]
     Active Substance: ELRANATAMAB
     Indication: Plasma cell myeloma
     Dosage: 76 MG, WEEKLY
     Dates: start: 20230407, end: 20231025

REACTIONS (4)
  - Hepatitis B [Unknown]
  - Papilloedema [Unknown]
  - Hypogammaglobulinaemia [Recovering/Resolving]
  - Infection [Unknown]

NARRATIVE: CASE EVENT DATE: 20230612
